FAERS Safety Report 16577940 (Version 2)
Quarter: 2019Q3

REPORT INFORMATION
  Report Type: Spontaneous
  Country: PL (occurrence: PL)
  Receive Date: 20190716
  Receipt Date: 20190808
  Transmission Date: 20191004
  Serious: Yes (Hospitalization)
  Sender: FDA-Public Use
  Company Number: PL-ALLERGAN-1928367US

PATIENT
  Age: 77 Year
  Sex: Male

DRUGS (3)
  1. INSULIN [Concomitant]
     Active Substance: INSULIN NOS
     Indication: DIABETES MELLITUS
     Dosage: UNK
  2. MORPHINE SULFATE UNK [Suspect]
     Active Substance: MORPHINE SULFATE
     Indication: PAIN
     Dosage: 400 MG, QD
     Route: 048
     Dates: start: 201802, end: 201802
  3. MIDAZOLAM [Interacting]
     Active Substance: MIDAZOLAM HYDROCHLORIDE
     Indication: SEDATION
     Dosage: UNK
     Route: 042
     Dates: start: 201802, end: 201802

REACTIONS (25)
  - Multiple organ dysfunction syndrome [Recovered/Resolved]
  - Drug interaction [Recovered/Resolved]
  - Neurotoxicity [Recovered/Resolved]
  - Hyperthermia [Recovered/Resolved]
  - Toxicity to various agents [Recovered/Resolved]
  - Blood osmolarity increased [Recovered/Resolved]
  - Dehydration [Recovered/Resolved]
  - Stupor [Recovered/Resolved]
  - Immobile [Recovered/Resolved]
  - Bradypnoea [Recovered/Resolved]
  - Delirium [Recovered/Resolved]
  - Product prescribing error [Unknown]
  - Hallucination [Recovered/Resolved]
  - Constipation [Recovered/Resolved]
  - Pulmonary oedema [Recovered/Resolved]
  - Hypercoagulation [Recovered/Resolved]
  - Accidental overdose [Recovered/Resolved]
  - Depressed level of consciousness [Recovered/Resolved]
  - Respiratory depression [Recovered/Resolved]
  - Hepatic failure [Recovered/Resolved]
  - Electrolyte imbalance [Recovered/Resolved]
  - Psychomotor hyperactivity [Recovered/Resolved]
  - Blood glucose fluctuation [Recovered/Resolved]
  - Hypersomnia [Recovered/Resolved]
  - Coma [Recovered/Resolved]

NARRATIVE: CASE EVENT DATE: 201802
